FAERS Safety Report 14307384 (Version 2)
Quarter: 2018Q1

REPORT INFORMATION
  Report Type: Spontaneous
  Country: US (occurrence: US)
  Receive Date: 20171220
  Receipt Date: 20180221
  Transmission Date: 20180509
  Serious: No
  Sender: FDA-Public Use
  Company Number: US-PFIZER INC-2017536285

PATIENT
  Age: 68 Year
  Sex: Female

DRUGS (3)
  1. GABAPENTIN. [Concomitant]
     Active Substance: GABAPENTIN
     Dosage: 300 MG, 1X/DAY (AT NIGHT)
  2. FLECTOR [Suspect]
     Active Substance: DICLOFENAC EPOLAMINE
     Indication: PAIN
     Dosage: UNK
     Dates: start: 201712
  3. QUINACRINE [Concomitant]
     Active Substance: QUINACRINE
     Indication: SJOGREN^S SYNDROME
     Dosage: 100 MG, 1X/DAY

REACTIONS (3)
  - Dizziness [Not Recovered/Not Resolved]
  - Ear disorder [Unknown]
  - Bronchitis [Unknown]
